FAERS Safety Report 18469641 (Version 2)
Quarter: 2021Q1

REPORT INFORMATION
  Report Type: Report from Study
  Country: US (occurrence: US)
  Receive Date: 20201105
  Receipt Date: 20210205
  Transmission Date: 20210419
  Serious: Yes (Hospitalization)
  Sender: FDA-Public Use
  Company Number: US-SHIRE-US202010237

PATIENT
  Age: 69 Year
  Sex: Female

DRUGS (8)
  1. TEDUGLUTIDE [Suspect]
     Active Substance: TEDUGLUTIDE
     Indication: SHORT-BOWEL SYNDROME
     Dosage: 2.9 MILLIGRAM, QD
     Route: 058
     Dates: start: 20191028, end: 20200317
  2. TEDUGLUTIDE [Suspect]
     Active Substance: TEDUGLUTIDE
     Indication: PARENTERAL NUTRITION
     Dosage: 0.130 INJECT, OTHER
     Route: 058
     Dates: start: 20191028
  3. TEDUGLUTIDE [Suspect]
     Active Substance: TEDUGLUTIDE
     Indication: SHORT-BOWEL SYNDROME
     Dosage: 2.9 MILLIGRAM, QD
     Route: 058
     Dates: start: 20191028, end: 20200317
  4. TEDUGLUTIDE [Suspect]
     Active Substance: TEDUGLUTIDE
     Indication: SHORT-BOWEL SYNDROME
     Dosage: 2.9 MILLIGRAM, QD
     Route: 058
     Dates: start: 20191028, end: 20200317
  5. TEDUGLUTIDE [Suspect]
     Active Substance: TEDUGLUTIDE
     Indication: PARENTERAL NUTRITION
     Dosage: 0.130 INJECT, OTHER
     Route: 058
     Dates: start: 20191028
  6. TEDUGLUTIDE [Suspect]
     Active Substance: TEDUGLUTIDE
     Indication: PARENTERAL NUTRITION
     Dosage: 0.130 INJECT, OTHER
     Route: 058
     Dates: start: 20191028
  7. TEDUGLUTIDE [Suspect]
     Active Substance: TEDUGLUTIDE
     Indication: PARENTERAL NUTRITION
     Dosage: 0.130 INJECT, OTHER
     Route: 058
     Dates: start: 20191028
  8. TEDUGLUTIDE [Suspect]
     Active Substance: TEDUGLUTIDE
     Indication: SHORT-BOWEL SYNDROME
     Dosage: 2.9 MILLIGRAM, QD
     Route: 058
     Dates: start: 20191028, end: 20200317

REACTIONS (9)
  - Oedema [Recovered/Resolved]
  - Lymphangioma [Unknown]
  - Abdominal distension [Unknown]
  - Blood pressure abnormal [Unknown]
  - Off label use [Unknown]
  - Hospitalisation [Not Recovered/Not Resolved]
  - Weight increased [Unknown]
  - Dyspnoea [Unknown]
  - Hypertension [Recovering/Resolving]

NARRATIVE: CASE EVENT DATE: 20200308
